FAERS Safety Report 11098364 (Version 3)
Quarter: 2015Q2

REPORT INFORMATION
  Report Type: Spontaneous
  Country: GB (occurrence: GB)
  Receive Date: 20150507
  Receipt Date: 20150604
  Transmission Date: 20150821
  Serious: Yes (Other)
  Sender: FDA-Public Use
  Company Number: GB-JNJFOC-20150424014

PATIENT
  Sex: Male

DRUGS (5)
  1. ZIRTEK [Suspect]
     Active Substance: CETIRIZINE HYDROCHLORIDE
     Indication: HYPERSENSITIVITY
     Route: 065
     Dates: end: 2015
  2. INDAPAMIDE. [Suspect]
     Active Substance: INDAPAMIDE
     Indication: BLOOD PRESSURE
     Dosage: FOR AROUND A WEEK AND A HALF
     Route: 065
  3. RAMIPRIL. [Suspect]
     Active Substance: RAMIPRIL
     Indication: BLOOD PRESSURE
     Dosage: USED FOR A WEEK
     Route: 065
     Dates: end: 2015
  4. ZIRTEK [Suspect]
     Active Substance: CETIRIZINE HYDROCHLORIDE
     Route: 065
  5. FELODIPINE. [Concomitant]
     Active Substance: FELODIPINE
     Indication: PRODUCT USED FOR UNKNOWN INDICATION
     Route: 065
     Dates: start: 201504

REACTIONS (7)
  - Hypertension [Unknown]
  - Hypersensitivity [Unknown]
  - Muscle tightness [Unknown]
  - Lip swelling [Unknown]
  - Feeling abnormal [Unknown]
  - Feeling hot [Unknown]
  - Drug effect incomplete [Unknown]

NARRATIVE: CASE EVENT DATE: 201503
